FAERS Safety Report 8395783-2 (Version None)
Quarter: 2012Q2

REPORT INFORMATION
  Report Type: 
  Country: None (occurrence: None)
  Receive Date: 20120530
  Receipt Date: 20120525
  Transmission Date: 20120825
  Serious: No
  Sender: FDA-Public Use
  Company Number: US-B.I. PHARMACEUTICALS,INC./RIDGEFIELD-2012-BP-12539BP

PATIENT
  Sex: Female

DRUGS (6)
  1. TOPROL-XL [Concomitant]
     Indication: BLOOD PRESSURE
     Route: 048
  2. NORVASC [Concomitant]
     Indication: BLOOD PRESSURE
     Route: 048
  3. TRADJENTA [Suspect]
     Indication: TYPE 2 DIABETES MELLITUS
     Dosage: 5 MG
     Route: 048
     Dates: start: 20120501
  4. LORAZEPAM [Concomitant]
     Indication: NERVOUSNESS
     Route: 048
  5. CENTRUM MULTIVITAMIN [Concomitant]
     Indication: SUPPLEMENTATION THERAPY
     Route: 048
  6. ZETIA [Concomitant]
     Indication: BLOOD CHOLESTEROL
     Route: 048

REACTIONS (3)
  - PRURITUS [None]
  - PRURITUS GENERALISED [None]
  - SCRATCH [None]
